FAERS Safety Report 8359902-6 (Version None)
Quarter: 2012Q2

REPORT INFORMATION
  Report Type: 
  Country: None (occurrence: None)
  Receive Date: 20120515
  Receipt Date: 20120504
  Transmission Date: 20120825
  Serious: Yes (Hospitalization)
  Sender: FDA-Public Use
  Company Number: MX-PFIZER INC-2012114400

PATIENT
  Age: 49 Year
  Sex: Female

DRUGS (7)
  1. RAMIPRIL [Suspect]
     Dosage: 2.5 MG, 1X/DAY
     Route: 048
     Dates: start: 20110901
  2. PANTOPRAZOLE [Concomitant]
     Indication: ABDOMINAL PAIN
     Dosage: 1 TABLET EVERY 24 HOURS
     Dates: start: 20110901, end: 20110901
  3. RAMIPRIL [Suspect]
     Indication: HYPERTENSION
     Dosage: 5 MG, 1X/DAY
     Route: 048
     Dates: start: 20110901, end: 20110901
  4. METFORMIN [Concomitant]
     Indication: TYPE 2 DIABETES MELLITUS
     Dosage: 850 MG, ONCE DAILY
     Dates: start: 20110901
  5. GLIBENCLAMIDE [Concomitant]
     Indication: TYPE 2 DIABETES MELLITUS
     Dosage: 5 MG, ONCE DAILY
     Dates: start: 20110901, end: 20120401
  6. OROXADIN [Suspect]
     Indication: HYPERLIPIDAEMIA
     Dosage: 100 MG, 1X/DAY
     Route: 048
     Dates: start: 20110901
  7. OMEPRAZOLE [Concomitant]
     Indication: ABDOMINAL PAIN
     Dosage: 1 TABLET, ONCE DAILY
     Dates: start: 20110901, end: 20110901

REACTIONS (2)
  - BENIGN OVARIAN TUMOUR [None]
  - HYPERLIPIDAEMIA [None]
